FAERS Safety Report 7470918-4 (Version None)
Quarter: 2011Q2

REPORT INFORMATION
  Report Type: 
  Country: None (occurrence: None)
  Receive Date: 20110428
  Receipt Date: 20110425
  Transmission Date: 20111010
  Serious: Yes (Other)
  Sender: FDA-Public Use
  Company Number: 2011028328

PATIENT
  Age: 64 Year
  Sex: Male
  Weight: 99.7913 kg

DRUGS (24)
  1. SPIRIVA [Concomitant]
  2. GABAPENTIN [Concomitant]
  3. CRESTOR [Concomitant]
  4. DILTIAZEM [Concomitant]
  5. VESICARE [Concomitant]
  6. VIVAGLOBIN [Suspect]
     Indication: IMMUNODEFICIENCY
     Dosage: 8.8 G 1X/WEEK, IN 4 SITES OVER 75 MINUTES, SUBCUTANEOUS
     Route: 058
     Dates: start: 20080403, end: 20110204
  7. LANTUS [Concomitant]
  8. GLIMEPIRIDE [Concomitant]
  9. OXYCODONE HCL [Concomitant]
  10. ANDROGEL [Concomitant]
  11. TIZANIDINE HCL [Concomitant]
  12. PREVACID [Concomitant]
  13. NOVOLOG [Concomitant]
  14. ADVAIR HFA [Concomitant]
  15. CELEBREX [Concomitant]
  16. CYMBALTA [Concomitant]
  17. FUROSEMIDE [Concomitant]
  18. CORTEF [Concomitant]
  19. HYDROCORTISONE [Concomitant]
  20. OXYCONTIN [Concomitant]
  21. FLECTOR [Concomitant]
  22. COZAAR [Concomitant]
  23. UROXATRAL [Concomitant]
  24. LORAZEPAM [Concomitant]

REACTIONS (5)
  - PNEUMONIA [None]
  - GENERAL PHYSICAL HEALTH DETERIORATION [None]
  - SPINAL FUSION SURGERY [None]
  - SEPSIS [None]
  - INFECTION [None]
